FAERS Safety Report 17728469 (Version 1)
Quarter: 2020Q2

REPORT INFORMATION
  Report Type: Report from Study
  Country: DE (occurrence: CN)
  Receive Date: 20200430
  Receipt Date: 20200430
  Transmission Date: 20200714
  Serious: Yes (Other)
  Sender: FDA-Public Use
  Company Number: CN-ELI_LILLY_AND_COMPANY-CN202004011867

PATIENT
  Age: 63 Year
  Sex: Male

DRUGS (13)
  1. CETUXIMAB. [Suspect]
     Active Substance: CETUXIMAB
     Indication: RECTAL CANCER METASTATIC
     Dosage: 800 MG, OTHER (ONCE IN TWO WEEKS)
     Route: 042
     Dates: start: 20181118, end: 20190131
  2. OXALIPLATIN. [Concomitant]
     Active Substance: OXALIPLATIN
     Indication: RECTAL CANCER METASTATIC
     Dosage: 130 MG, OTHER (ONCE IN TWO WEEKS)
     Dates: start: 20181102, end: 20190131
  3. OXALIPLATIN. [Concomitant]
     Active Substance: OXALIPLATIN
     Dosage: 130 MG, UNKNOWN
     Dates: start: 20190216, end: 20190411
  4. LEUCOVORIN CALCIUM. [Concomitant]
     Active Substance: LEUCOVORIN CALCIUM
     Dosage: 600 MG, UNK
     Dates: start: 20190216, end: 20190411
  5. FLUOROURACIL. [Concomitant]
     Active Substance: FLUOROURACIL
     Indication: RECTAL CANCER METASTATIC
     Dosage: 425 MG, OTHER (ONCE IN TWO WEEKS)
     Route: 040
     Dates: start: 20181102, end: 20181219
  6. FLUOROURACIL. [Concomitant]
     Active Substance: FLUOROURACIL
     Dosage: 3750 MG, OTHER (ONCE IN TWO WEEKS)
     Route: 042
     Dates: start: 20181102
  7. FLUOROURACIL. [Concomitant]
     Active Substance: FLUOROURACIL
     Dosage: 500 MG, UNKNOWN
     Route: 040
     Dates: start: 20190216, end: 20190411
  8. CETUXIMAB. [Suspect]
     Active Substance: CETUXIMAB
     Dosage: 800 MG, UNKNOWN
     Route: 042
     Dates: start: 20190216, end: 20190411
  9. LEUCOVORIN CALCIUM. [Concomitant]
     Active Substance: LEUCOVORIN CALCIUM
     Indication: RECTAL CANCER METASTATIC
     Dosage: 200 MG, OTHER (ONCE IN TWO WEEKS)
     Dates: start: 20181102, end: 20181219
  10. FLUOROURACIL. [Concomitant]
     Active Substance: FLUOROURACIL
     Dosage: 3500 MG, UNKNOWN
     Route: 042
     Dates: start: 20190216
  11. FLUOROURACIL. [Concomitant]
     Active Substance: FLUOROURACIL
     Dosage: 500 MG, UNKNOWN
     Route: 040
     Dates: start: 20190105, end: 20190131
  12. FLUOROURACIL. [Concomitant]
     Active Substance: FLUOROURACIL
     Dosage: 3500 MG, UNKNOWN
     Route: 042
     Dates: start: 20190105
  13. LEUCOVORIN CALCIUM. [Concomitant]
     Active Substance: LEUCOVORIN CALCIUM
     Dosage: 600 MG, UNKNOWN
     Dates: start: 20190105, end: 20190131

REACTIONS (2)
  - Off label use [Unknown]
  - Leukopenia [Recovering/Resolving]
